FAERS Safety Report 11843743 (Version 1)
Quarter: 2015Q4

REPORT INFORMATION
  Report Type: Spontaneous
  Country: US (occurrence: US)
  Receive Date: 20151217
  Receipt Date: 20151217
  Transmission Date: 20160305
  Serious: No
  Sender: FDA-Public Use
  Company Number: US-HOSPIRA-2694976

PATIENT
  Age: 68 Year
  Sex: Female

DRUGS (1)
  1. AMIDATE [Suspect]
     Active Substance: ETOMIDATE
     Indication: ANAESTHESIA PROCEDURE

REACTIONS (1)
  - Drug ineffective [Recovered/Resolved]
